FAERS Safety Report 20375397 (Version 1)
Quarter: 2022Q1

REPORT INFORMATION
  Report Type: Spontaneous
  Country: US (occurrence: US)
  Receive Date: 20220125
  Receipt Date: 20220125
  Transmission Date: 20220423
  Serious: No
  Sender: FDA-Public Use
  Company Number: US-PFIZER INC-202101462449

PATIENT

DRUGS (1)
  1. XELJANZ [Suspect]
     Active Substance: TOFACITINIB CITRATE
     Indication: Alopecia areata
     Dosage: UNK

REACTIONS (4)
  - Off label use [Unknown]
  - Hair growth abnormal [Unknown]
  - Alopecia [Unknown]
  - Drug effective for unapproved indication [Unknown]
